FAERS Safety Report 4882877-9 (Version None)
Quarter: 2006Q1

REPORT INFORMATION
  Report Type: 
  Country: None (occurrence: None)
  Receive Date: 20060118
  Receipt Date: 20060106
  Transmission Date: 20060701
  Serious: Yes (Hospitalization, Other)
  Sender: FDA-Public Use
  Company Number: US-MERCK-0601USA01061

PATIENT
  Age: 57 Year
  Sex: Female
  Weight: 77 kg

DRUGS (9)
  1. VIOXX [Suspect]
     Indication: ARTHRITIS
     Route: 048
     Dates: start: 19990101, end: 20030101
  2. AMBIEN [Concomitant]
     Route: 065
  3. MAALOX FAST BLOCKER [Concomitant]
     Route: 065
  4. TYLENOL W/ CODEINE NO. 3 [Concomitant]
     Route: 065
  5. CELEBREX [Concomitant]
     Route: 065
  6. ASPIRIN [Concomitant]
     Route: 065
  7. NITROGLYCERIN [Concomitant]
     Route: 065
  8. ISORDIL [Concomitant]
     Route: 065
  9. BENAZEPRIL HYDROCHLORIDE [Concomitant]
     Route: 065

REACTIONS (27)
  - ABDOMINAL PAIN [None]
  - ABDOMINAL PAIN LOWER [None]
  - ARTHRALGIA [None]
  - BACK PAIN [None]
  - BLOOD PRESSURE INCREASED [None]
  - BRADYCARDIA [None]
  - CEREBROVASCULAR ACCIDENT [None]
  - CHEST PAIN [None]
  - CHOLECYSTITIS [None]
  - CHOLELITHIASIS [None]
  - COUGH [None]
  - DYSARTHRIA [None]
  - FLANK PAIN [None]
  - FLATULENCE [None]
  - GALLBLADDER DISORDER [None]
  - GASTRITIS [None]
  - GASTROOESOPHAGEAL REFLUX DISEASE [None]
  - HEADACHE [None]
  - HEMIPARESIS [None]
  - HYPERTENSION [None]
  - INSOMNIA [None]
  - MUSCLE SPASMS [None]
  - MYOCARDIAL INFARCTION [None]
  - OTITIS MEDIA [None]
  - PAIN IN EXTREMITY [None]
  - SYNCOPE [None]
  - TRANSIENT ISCHAEMIC ATTACK [None]
